FAERS Safety Report 9289934 (Version 1)
Quarter: 2013Q2

REPORT INFORMATION
  Report Type: Spontaneous
  Country: US (occurrence: US)
  Receive Date: 20130515
  Receipt Date: 20130515
  Transmission Date: 20140414
  Serious: Yes (Hospitalization)
  Sender: FDA-Public Use
  Company Number: US-BAYER-2013-057639

PATIENT
  Age: 36 Year
  Sex: Female

DRUGS (5)
  1. YASMIN [Suspect]
     Dosage: UNK
  2. CELEBREX [Concomitant]
     Dosage: 200 MG, UNK
     Route: 048
  3. FEXOFENADINE [Concomitant]
     Route: 048
  4. TOPAMAX [Concomitant]
  5. ALLEGRA [Concomitant]

REACTIONS (1)
  - Deep vein thrombosis [Recovered/Resolved]
